FAERS Safety Report 22107457 (Version 15)
Quarter: 2025Q1

REPORT INFORMATION
  Report Type: Report from Study
  Country: US (occurrence: US)
  Receive Date: 20230317
  Receipt Date: 20250313
  Transmission Date: 20250408
  Serious: Yes (Hospitalization, Other)
  Sender: ABBVIE
  Company Number: US-ABBVIE-4343384

PATIENT
  Age: 38 Year
  Sex: Male

DRUGS (11)
  1. HUMIRA [Suspect]
     Active Substance: ADALIMUMAB
     Indication: Crohn^s disease
     Route: 058
     Dates: start: 20200213, end: 20200408
  2. HUMIRA [Suspect]
     Active Substance: ADALIMUMAB
     Route: 058
  3. HUMIRA [Suspect]
     Active Substance: ADALIMUMAB
     Route: 058
     Dates: start: 20200730
  4. HUMIRA [Suspect]
     Active Substance: ADALIMUMAB
     Route: 058
     Dates: start: 20200213
  5. HUMIRA [Suspect]
     Active Substance: ADALIMUMAB
     Route: 058
  6. HUMIRA [Suspect]
     Active Substance: ADALIMUMAB
     Route: 058
  7. HUMIRA [Suspect]
     Active Substance: ADALIMUMAB
     Route: 058
  8. HUMIRA [Suspect]
     Active Substance: ADALIMUMAB
     Route: 058
  9. HUMIRA [Suspect]
     Active Substance: ADALIMUMAB
     Route: 058
  10. HUMIRA [Suspect]
     Active Substance: ADALIMUMAB
     Route: 058
  11. HUMIRA [Suspect]
     Active Substance: ADALIMUMAB
     Route: 058

REACTIONS (48)
  - Autonomic nervous system imbalance [Unknown]
  - Nausea [Unknown]
  - Tooth infection [Unknown]
  - Unevaluable event [Unknown]
  - Tooth loss [Unknown]
  - Dizziness [Unknown]
  - Vein disorder [Unknown]
  - Gingival recession [Unknown]
  - COVID-19 [Recovering/Resolving]
  - Tooth extraction [Unknown]
  - Confusional state [Unknown]
  - Fatigue [Unknown]
  - Fall [Unknown]
  - Inappropriate schedule of product administration [Unknown]
  - Loss of consciousness [Unknown]
  - Wound [Unknown]
  - Pain [Not Recovered/Not Resolved]
  - Gingival pain [Unknown]
  - Bradycardia [Unknown]
  - Hospitalisation [Recovered/Resolved]
  - Oral infection [Unknown]
  - Dyspnoea [Unknown]
  - Malabsorption [Unknown]
  - Intervertebral disc compression [Unknown]
  - Hypotension [Unknown]
  - Rib fracture [Unknown]
  - Tachycardia [Unknown]
  - Amnesia [Unknown]
  - Guillain-Barre syndrome [Unknown]
  - Cardiac disorder [Unknown]
  - Crohn^s disease [Unknown]
  - Back pain [Unknown]
  - Nervous system disorder [Unknown]
  - Postural orthostatic tachycardia syndrome [Unknown]
  - Back injury [Unknown]
  - Discomfort [Unknown]
  - Intestinal polyp [Unknown]
  - Serum ferritin decreased [Unknown]
  - White blood cell count increased [Unknown]
  - Sedation [Unknown]
  - Autism spectrum disorder [Not Recovered/Not Resolved]
  - Encephalitis autoimmune [Unknown]
  - Oxygen saturation decreased [Unknown]
  - Spinal column injury [Unknown]
  - Neck pain [Unknown]
  - Food refusal [Unknown]
  - Refusal of treatment by patient [Unknown]
  - Tooth fracture [Unknown]

NARRATIVE: CASE EVENT DATE: 20230227
